FAERS Safety Report 11470377 (Version 2)
Quarter: 2015Q3

REPORT INFORMATION
  Report Type: Spontaneous
  Country: US (occurrence: US)
  Receive Date: 20150903
  Receipt Date: 20150903
  Transmission Date: 20151125
  Serious: Yes (Other)
  Sender: FDA-Public Use
  Company Number: US-ELI_LILLY_AND_COMPANY-US201112000250

PATIENT
  Age: 43 Year
  Sex: Female

DRUGS (5)
  1. ADVIL [Concomitant]
     Active Substance: IBUPROFEN
     Dosage: 800 MG, BID
  2. PLAQUENIL [Concomitant]
     Active Substance: HYDROXYCHLOROQUINE SULFATE
     Indication: SOFT TISSUE DISORDER
     Dosage: 200 MG, BID
  3. TOPAMAX [Concomitant]
     Active Substance: TOPIRAMATE
     Indication: MIGRAINE
     Dosage: 100 MG, EACH EVENING
  4. CYMBALTA [Suspect]
     Active Substance: DULOXETINE HYDROCHLORIDE
     Indication: MIGRAINE
     Dosage: 60 MG, UNK
     Dates: start: 20110801, end: 20111102
  5. MAXALT                                  /USA/ [Concomitant]
     Dosage: UNK, PRN

REACTIONS (4)
  - Blood albumin decreased [Unknown]
  - Supraventricular tachycardia [Recovered/Resolved]
  - Glomerular filtration rate decreased [Unknown]
  - Blood calcium decreased [Unknown]
